FAERS Safety Report 9891179 (Version 2)
Quarter: 2014Q3

REPORT INFORMATION
  Report Type: Spontaneous
  Country: US (occurrence: US)
  Receive Date: 20140212
  Receipt Date: 20140822
  Transmission Date: 20150326
  Serious: Yes (Life-Threatening, Hospitalization, Disabling, Other)
  Sender: FDA-Public Use
  Company Number: US-GE HEALTHCARE MEDICAL DIAGNOSTICS-VISP-PR-1401S-0027

PATIENT
  Age: 63 Year
  Sex: Male
  Weight: 53.57 kg

DRUGS (2)
  1. VISIPAQUE [Suspect]
     Active Substance: IODIXANOL
     Indication: SUPERIOR VENA CAVA STENOSIS
     Dosage: DOSE NOT REPORTED
     Route: 042
     Dates: start: 20140128, end: 20140128
  2. VISIPAQUE [Suspect]
     Active Substance: IODIXANOL
     Indication: THERAPEUTIC PROCEDURE

REACTIONS (3)
  - Seizure like phenomena [Unknown]
  - Urinary incontinence [Unknown]
  - Contrast media allergy [Unknown]

NARRATIVE: CASE EVENT DATE: 201401
